FAERS Safety Report 23222994 (Version 3)
Quarter: 2024Q2

REPORT INFORMATION
  Report Type: Spontaneous
  Country: AU (occurrence: AU)
  Receive Date: 20231123
  Receipt Date: 20240425
  Transmission Date: 20240716
  Serious: Yes (Death)
  Sender: FDA-Public Use
  Company Number: AU-ABBVIE-5509546

PATIENT

DRUGS (1)
  1. GLECAPREVIR\PIBRENTASVIR [Suspect]
     Active Substance: GLECAPREVIR\PIBRENTASVIR
     Indication: Antiviral prophylaxis
     Dosage: 3 TABLET
     Route: 048

REACTIONS (3)
  - Cardiac arrest [Fatal]
  - Hyperbilirubinaemia [Unknown]
  - Bradycardia [Fatal]
